FAERS Safety Report 8886816 (Version 1)
Quarter: 2012Q4

REPORT INFORMATION
  Report Type: 
  Country: US (occurrence: US)
  Receive Date: 20121105
  Receipt Date: 20121105
  Transmission Date: 20130627
  Serious: No
  Sender: FDA-Public Use
  Company Number: US-PFIZER INC-2012267356

PATIENT
  Age: 59 Year
  Sex: Female
  Weight: 57.1 kg

DRUGS (3)
  1. EFFEXOR XR [Suspect]
     Indication: ANXIETY
     Dosage: UNK
  2. EFFEXOR XR [Suspect]
     Indication: DEPRESSIVE DISORDER
     Dosage: UNK
     Dates: start: 201210
  3. VENLAFAXINE HYDROCHLORIDE [Suspect]
     Indication: ANXIETY
     Dosage: UNK

REACTIONS (8)
  - Anxiety [Not Recovered/Not Resolved]
  - Dyskinesia [Unknown]
  - Neuropathy peripheral [Unknown]
  - Nasopharyngitis [Unknown]
  - Blood cholesterol increased [Unknown]
  - Bruxism [Unknown]
  - Drug ineffective [Unknown]
  - Anxiety [Not Recovered/Not Resolved]
